FAERS Safety Report 26053253 (Version 1)
Quarter: 2025Q4

REPORT INFORMATION
  Report Type: Spontaneous
  Country: US (occurrence: None)
  Receive Date: 20251115
  Receipt Date: 20251115
  Transmission Date: 20260118
  Serious: Yes (Hospitalization)
  Sender: FDA-CTU
  Company Number: None

PATIENT
  Age: 66 Year
  Sex: Male
  Weight: 51.17 kg

DRUGS (3)
  1. CARBOPLATIN [Suspect]
     Active Substance: CARBOPLATIN
     Dosage: OTHER QUANTITY : 75MG 75MG/MS;?
     Dates: end: 20250908
  2. DURVALUMAB [Suspect]
     Active Substance: DURVALUMAB
     Dates: end: 20251031
  3. ALIMTA [Suspect]
     Active Substance: PEMETREXED DISODIUM
     Dosage: OTHER FREQUENCY : 500 MG/M2;?
     Dates: end: 20250908

REACTIONS (8)
  - Dyspnoea [None]
  - Oxygen consumption increased [None]
  - Radiation oesophagitis [None]
  - Pneumothorax [None]
  - Hilar lymphadenopathy [None]
  - Pulmonary septal thickening [None]
  - Pneumonia [None]
  - Immune-mediated lung disease [None]

NARRATIVE: CASE EVENT DATE: 20251110
